FAERS Safety Report 6931757-3 (Version None)
Quarter: 2010Q3

REPORT INFORMATION
  Report Type: 
  Country: None (occurrence: None)
  Receive Date: 20100819
  Receipt Date: 20100809
  Transmission Date: 20110219
  Serious: Yes (Other)
  Sender: FDA-Public Use
  Company Number: FR-PFIZER INC-2010099549

PATIENT
  Age: 72 Year
  Sex: Male

DRUGS (1)
  1. DOXAZOSIN MESYLATE [Suspect]
     Indication: HYPERTENSION
     Dosage: 4 MG, 1X/DAY
     Route: 048
     Dates: end: 20100501

REACTIONS (3)
  - LOSS OF CONSCIOUSNESS [None]
  - URINARY INCONTINENCE [None]
  - VISUAL IMPAIRMENT [None]
